FAERS Safety Report 20867435 (Version 1)
Quarter: 2022Q2

REPORT INFORMATION
  Report Type: Spontaneous
  Country: US (occurrence: US)
  Receive Date: 20220524
  Receipt Date: 20220524
  Transmission Date: 20220721
  Serious: No
  Sender: FDA-Public Use
  Company Number: US-PFIZER INC-202200725367

PATIENT
  Age: 66 Year
  Sex: Female
  Weight: 62.6 kg

DRUGS (1)
  1. PAXLOVID [Suspect]
     Active Substance: NIRMATRELVIR\RITONAVIR
     Indication: COVID-19 treatment
     Dosage: UNK, 2X/DAY (TABLETS TOGETHER, TWO 150MG TABLETS AND ONE 100MG TABLET, 2 DIFFERENT MEDICATIONS)
     Route: 048
     Dates: start: 20220516

REACTIONS (3)
  - Hypoaesthesia oral [Recovered/Resolved]
  - Nervousness [Recovered/Resolved]
  - Streptococcus test positive [Unknown]

NARRATIVE: CASE EVENT DATE: 20220516
